FAERS Safety Report 6225565-9 (Version None)
Quarter: 2009Q2

REPORT INFORMATION
  Report Type: 
  Country: None (occurrence: None)
  Receive Date: 20090612
  Receipt Date: 20090427
  Transmission Date: 20091009
  Serious: No
  Sender: FDA-Public Use
  Company Number: US-ABBOTT-09P-163-0570045-00

PATIENT
  Sex: Female
  Weight: 72.186 kg

DRUGS (16)
  1. HUMIRA [Suspect]
     Indication: RHEUMATOID ARTHRITIS
     Route: 058
     Dates: start: 20071201, end: 20080501
  2. HUMIRA [Suspect]
     Route: 058
     Dates: start: 20080501
  3. PLAQUENIL [Concomitant]
     Indication: RHEUMATOID ARTHRITIS
     Route: 048
  4. CELEBREX [Concomitant]
     Indication: RHEUMATOID ARTHRITIS
     Route: 048
  5. VOLTAREN [Concomitant]
     Indication: RHEUMATOID ARTHRITIS
     Dosage: GEL
     Route: 061
  6. CYMBALTA [Concomitant]
     Indication: NEURALGIA
     Route: 048
  7. OPANA [Concomitant]
     Indication: PAIN
     Route: 048
  8. ALPRAZOLAM [Concomitant]
     Indication: INSOMNIA
     Route: 048
  9. METANX [Concomitant]
     Indication: PROPHYLAXIS
     Dosage: PURPLE
     Route: 048
  10. FOSAMAX [Concomitant]
     Indication: OSTEOPENIA
  11. LEVOTHYROXINE [Concomitant]
     Indication: HYPOTHYROIDISM
     Route: 048
  12. HYDROXYZINE [Concomitant]
     Indication: ANTIALLERGIC THERAPY
     Dosage: 0.5 TABLET AT BEDTIME AS NEEDED
     Route: 048
  13. RHINOCORT [Concomitant]
     Indication: SEASONAL ALLERGY
     Dosage: 2 SPRAYS EACH NOSTRIL
     Route: 045
  14. CLARINEX [Concomitant]
     Indication: SEASONAL ALLERGY
  15. PROVENTIL-HFA [Concomitant]
     Indication: CHRONIC OBSTRUCTIVE PULMONARY DISEASE
     Route: 055
  16. BIOFLEX [Concomitant]
     Indication: MEDICAL DIET
     Route: 048

REACTIONS (4)
  - INJECTION SITE HAEMATOMA [None]
  - INJECTION SITE HAEMORRHAGE [None]
  - LOWER RESPIRATORY TRACT INFECTION [None]
  - SINUSITIS [None]
